FAERS Safety Report 9667367 (Version 2)
Quarter: 2014Q1

REPORT INFORMATION
  Report Type: Spontaneous
  Country: US (occurrence: US)
  Receive Date: 20131104
  Receipt Date: 20140107
  Transmission Date: 20141002
  Serious: No
  Sender: FDA-Public Use
  Company Number: US-BIOGENIDEC-2013BI090961

PATIENT
  Age: 56 Year
  Sex: Female
  Weight: 71 kg

DRUGS (11)
  1. TECFIDERA [Suspect]
     Indication: MULTIPLE SCLEROSIS
     Route: 048
     Dates: start: 20130821
  2. TECFIDERA [Suspect]
     Indication: MULTIPLE SCLEROSIS
     Route: 048
     Dates: start: 20130828
  3. TECFIDERA [Suspect]
     Indication: MULTIPLE SCLEROSIS
     Route: 048
     Dates: start: 201311, end: 20131118
  4. TECFIDERA [Suspect]
     Indication: MULTIPLE SCLEROSIS
     Route: 048
     Dates: start: 20131218
  5. PROPRANOLOL [Concomitant]
  6. VITAMIN D [Concomitant]
  7. VITAMIN C [Concomitant]
  8. HCTZ [Concomitant]
  9. BABY ASPIRIN [Concomitant]
  10. PREMPRO [Concomitant]
  11. POTASSIUM [Concomitant]

REACTIONS (4)
  - Weight decreased [Unknown]
  - Dehydration [Unknown]
  - Underdose [Unknown]
  - Diarrhoea [Unknown]
